FAERS Safety Report 4707611-4 (Version None)
Quarter: 2005Q3

REPORT INFORMATION
  Report Type: 
  Country: None (occurrence: None)
  Receive Date: 20050705
  Receipt Date: 20050616
  Transmission Date: 20060218
  Serious: Yes (Hospitalization)
  Sender: FDA-Public Use
  Company Number: 2005-0008393

PATIENT
  Age: 34 Year
  Sex: Female
  Weight: 69 kg

DRUGS (3)
  1. VIREAD [Suspect]
     Indication: HIV INFECTION
     Dosage: 300 MG 1 IN 1 D, ORAL
     Route: 048
     Dates: start: 20030121, end: 20050201
  2. EPIVIR [Suspect]
     Indication: HIV INFECTION
     Dosage: 300 MG 1 IN 1D ORAL
     Route: 048
     Dates: start: 20030121, end: 20050201
  3. SUSTIVA [Suspect]
     Dosage: 600 MG 1 IN 1D ORAL
     Route: 048
     Dates: start: 20030121, end: 20050201

REACTIONS (1)
  - DELIRIUM [None]
